FAERS Safety Report 8958416 (Version 1)
Quarter: 2012Q4

REPORT INFORMATION
  Report Type: Spontaneous
  Country: US (occurrence: None)
  Receive Date: 20121205
  Receipt Date: 20121205
  Transmission Date: 20130627
  Serious: Yes (Hospitalization, Other)
  Sender: FDA-Public Use
  Company Number: None

PATIENT
  Sex: Female
  Weight: 64.5 kg

DRUGS (2)
  1. PRIVIGEN [Suspect]
     Dosage: over 3 days
     Route: 042
     Dates: start: 20121022, end: 20121024
  2. PRIVIGEN [Suspect]
     Dates: start: 20121119, end: 20121121

REACTIONS (2)
  - Urinary tract infection [None]
  - Atrioventricular block [None]
